FAERS Safety Report 5822672-7 (Version None)
Quarter: 2008Q3

REPORT INFORMATION
  Report Type: 
  Country: None (occurrence: None)
  Receive Date: 20080714
  Receipt Date: 20071025
  Transmission Date: 20090109
  Serious: Yes (Other)
  Sender: FDA-Public Use
  Company Number: 534782

PATIENT
  Age: 60 Year
  Sex: Female

DRUGS (9)
  1. BONIVA [Suspect]
     Indication: OSTEOPENIA
     Dosage: 150 MG
     Dates: start: 20070801
  2. NEURONTIN [Concomitant]
  3. TENORMIN [Concomitant]
  4. ZANTAC [Concomitant]
  5. LEVBID (HYOSCYAMINE SULFATE) [Concomitant]
  6. LIBRAX [Concomitant]
  7. TOPAMAX [Concomitant]
  8. TESSALON [Concomitant]
  9. ACETAMINOPHEN [Concomitant]

REACTIONS (5)
  - CLOSTRIDIAL INFECTION [None]
  - DIARRHOEA [None]
  - VOMITING [None]
  - WEIGHT [None]
  - WEIGHT DECREASED [None]
